FAERS Safety Report 19306039 (Version 2)
Quarter: 2021Q2

REPORT INFORMATION
  Report Type: Report from Study
  Country: US (occurrence: US)
  Receive Date: 20210526
  Receipt Date: 20210530
  Transmission Date: 20210717
  Serious: Yes (Hospitalization, Other)
  Sender: FDA-Public Use
  Company Number: US-JNJFOC-20210535923

PATIENT
  Age: 27 Year
  Sex: Female

DRUGS (6)
  1. FERROUS FUMARATE [Concomitant]
     Active Substance: FERROUS FUMARATE
  2. INFLIXIMAB, RECOMBINANT [Suspect]
     Active Substance: INFLIXIMAB
     Indication: CROHN^S DISEASE
     Route: 042
  3. INFLIXIMAB, RECOMBINANT [Suspect]
     Active Substance: INFLIXIMAB
     Route: 042
  4. CANASA [Concomitant]
     Active Substance: MESALAMINE
  5. 6?MP [Concomitant]
     Active Substance: MERCAPTOPURINE
     Indication: CROHN^S DISEASE
  6. LIALDA [Concomitant]
     Active Substance: MESALAMINE

REACTIONS (11)
  - Iron deficiency anaemia [Not Recovered/Not Resolved]
  - Crohn^s disease [Unknown]
  - Gastrointestinal oedema [Unknown]
  - Myofascial pain syndrome [Unknown]
  - Arthritis [Unknown]
  - Drug ineffective [Unknown]
  - Product use issue [Unknown]
  - Haematemesis [Recovered/Resolved]
  - Myalgia [Unknown]
  - Off label use [Unknown]
  - COVID-19 [Recovered/Resolved]

NARRATIVE: CASE EVENT DATE: 20210327
